FAERS Safety Report 5169322-3 (Version None)
Quarter: 2006Q4

REPORT INFORMATION
  Report Type: 
  Country: None (occurrence: None)
  Receive Date: 20061201
  Receipt Date: 20061120
  Transmission Date: 20070319
  Serious: Yes (Other)
  Sender: FDA-Public Use
  Company Number: 2006144416

PATIENT
  Sex: Male

DRUGS (1)
  1. LISTERINE [Suspect]
     Dosage: 1 LITRE, ORAL
     Route: 048

REACTIONS (3)
  - ALCOHOLISM [None]
  - IMPAIRED DRIVING ABILITY [None]
  - INCORRECT ROUTE OF DRUG ADMINISTRATION [None]
